FAERS Safety Report 4807367-0 (Version None)
Quarter: 2005Q4

REPORT INFORMATION
  Report Type: 
  Country: None (occurrence: None)
  Receive Date: 20051024
  Receipt Date: 20040225
  Transmission Date: 20060501
  Serious: Yes (Life-Threatening, Hospitalization)
  Sender: FDA-Public Use
  Company Number: US-MERCK-0402USA01829

PATIENT
  Age: 64 Year
  Sex: Male
  Weight: 111 kg

DRUGS (5)
  1. VIOXX [Suspect]
     Indication: OSTEOARTHRITIS
     Route: 048
     Dates: start: 20010316, end: 20020624
  2. ASPIRIN [Concomitant]
     Indication: PAIN
     Route: 065
  3. INDOCIN [Concomitant]
     Route: 065
  4. LASIX [Concomitant]
     Route: 048
  5. K-DUR 10 [Concomitant]
     Route: 048

REACTIONS (19)
  - ANAEMIA [None]
  - CEREBROVASCULAR ACCIDENT [None]
  - COLONIC POLYP [None]
  - DIVERTICULUM [None]
  - EMOTIONAL DISTRESS [None]
  - GASTRIC ULCER [None]
  - GLOMERULONEPHRITIS MEMBRANOUS [None]
  - GOUT [None]
  - HAEMORRHOIDS [None]
  - HIATUS HERNIA [None]
  - HYPERGLYCAEMIA [None]
  - MEDICATION ERROR [None]
  - METAPLASIA [None]
  - NEPHROLITHIASIS [None]
  - OEDEMA PERIPHERAL [None]
  - PNEUMONIA [None]
  - RENAL FAILURE [None]
  - SLEEP APNOEA SYNDROME [None]
  - URETHRAL STENOSIS [None]
